FAERS Safety Report 5186565-3 (Version None)
Quarter: 2006Q4

REPORT INFORMATION
  Report Type: 
  Country: None (occurrence: None)
  Receive Date: 20061213
  Receipt Date: 20061129
  Transmission Date: 20070319
  Serious: Yes (Hospitalization, Other)
  Sender: FDA-Public Use
  Company Number: 2006EU003180

PATIENT
  Age: 43 Year
  Sex: Male

DRUGS (1)
  1. PROGRAF [Suspect]
     Indication: LIVER TRANSPLANT

REACTIONS (6)
  - CEREBROVASCULAR SPASM [None]
  - DISORIENTATION [None]
  - HEMIANOPIA [None]
  - INADEQUATE ANALGESIA [None]
  - MIGRAINE WITHOUT AURA [None]
  - TRANSIENT ISCHAEMIC ATTACK [None]
